FAERS Safety Report 6760958-2 (Version None)
Quarter: 2010Q2

REPORT INFORMATION
  Report Type: 
  Country: None (occurrence: None)
  Receive Date: 20100608
  Receipt Date: 20100601
  Transmission Date: 20101027
  Serious: Yes (Life-Threatening, Hospitalization)
  Sender: FDA-Public Use
  Company Number: FR-KINGPHARMUSA00001-K201000487

PATIENT
  Age: 84 Year
  Sex: Female

DRUGS (11)
  1. ALTACE [Suspect]
     Indication: HYPERTENSION
     Dosage: 2.5 MG, QD
     Route: 048
     Dates: start: 20091006, end: 20091126
  2. SPIRONOLACTONE [Suspect]
     Indication: HYPERTENSION
     Dosage: 25 MG, QD
     Route: 048
     Dates: start: 20091006, end: 20091126
  3. XIPAMIDE [Suspect]
     Indication: HYPERTENSION
     Dosage: 10 MG, QD
     Route: 048
     Dates: start: 20091006, end: 20091126
  4. TORSEMIDE [Suspect]
     Indication: HYPERTENSION
     Dosage: 5 MG, QD
     Route: 048
     Dates: start: 20091006, end: 20091126
  5. MICTONORM [Suspect]
     Indication: STRESS URINARY INCONTINENCE
     Dosage: 15 MG, QD
     Route: 048
     Dates: start: 20091006, end: 20091126
  6. MELPERONE [Suspect]
     Indication: VASCULAR DEMENTIA
     Dosage: 25 MG, QD
     Route: 048
     Dates: start: 20091006, end: 20091126
  7. BIPERIDEN HYDROCHLORIDE [Concomitant]
     Dosage: UNK
     Dates: start: 20091006
  8. ZOLPIDEM [Concomitant]
     Dosage: UNK
     Dates: start: 20091006, end: 20091126
  9. PANTOPRAZOLE [Concomitant]
     Dosage: UNK
     Dates: start: 20091006, end: 20091126
  10. CLOPIDOGREL [Concomitant]
     Dosage: UNK
     Dates: start: 20091006
  11. SIMVASTATIN [Concomitant]
     Dosage: UNK
     Dates: start: 20091006, end: 20091126

REACTIONS (17)
  - CEREBELLAR ATROPHY [None]
  - DEHYDRATION [None]
  - DEPRESSED LEVEL OF CONSCIOUSNESS [None]
  - DISORIENTATION [None]
  - DRY SKIN [None]
  - ERYTHEMA [None]
  - EXCORIATION [None]
  - FALL [None]
  - GENERAL PHYSICAL HEALTH DETERIORATION [None]
  - HYPOPHAGIA [None]
  - HYPOTENSION [None]
  - PRURITUS [None]
  - RENAL FAILURE ACUTE [None]
  - SOMNOLENCE [None]
  - TONGUE COATED [None]
  - TONGUE DRY [None]
  - URINARY TRACT INFECTION [None]
